FAERS Safety Report 7052700-5 (Version None)
Quarter: 2010Q4

REPORT INFORMATION
  Report Type: 
  Country: None (occurrence: None)
  Receive Date: 20101012
  Receipt Date: 20101006
  Transmission Date: 20110411
  Serious: Yes (Other)
  Sender: FDA-Public Use
  Company Number: A0874416A

PATIENT
  Age: 73 Year
  Sex: Male

DRUGS (3)
  1. MICONAZOLE NITRATE [Suspect]
     Indication: TINEA CRURIS
     Dosage: 1 APPLICATION(S) / TWICE PER DAY / TOPICAL
     Route: 061
     Dates: start: 20100701
  2. UNKNOWN (FORMULATION UNKNOWN) (UNKNOWN) [Suspect]
     Indication: PRODUCT USED FOR UNKNOWN INDICATION
  3. LOTION [Concomitant]

REACTIONS (2)
  - HAEMORRHAGE [None]
  - PENIS DISORDER [None]
